FAERS Safety Report 13500833 (Version 1)
Quarter: 2017Q2

REPORT INFORMATION
  Report Type: Spontaneous
  Country: US (occurrence: US)
  Receive Date: 20170501
  Receipt Date: 20170501
  Transmission Date: 20170830
  Serious: No
  Sender: FDA-Public Use
  Company Number: US-ROCHE-1824507

PATIENT
  Age: 75 Year
  Sex: Female

DRUGS (1)
  1. ESBRIET [Suspect]
     Active Substance: PIRFENIDONE
     Indication: IDIOPATHIC PULMONARY FIBROSIS
     Dosage: 2 CAPSULES TID WITH FOOD
     Route: 048
     Dates: start: 20150305

REACTIONS (3)
  - Diarrhoea [Unknown]
  - Poor quality sleep [Unknown]
  - Memory impairment [Unknown]

NARRATIVE: CASE EVENT DATE: 20160801
